FAERS Safety Report 14452618 (Version 3)
Quarter: 2018Q1

REPORT INFORMATION
  Report Type: Spontaneous
  Country: FR (occurrence: FR)
  Receive Date: 20180129
  Receipt Date: 20180319
  Transmission Date: 20180509
  Serious: Yes (Hospitalization, Other)
  Sender: FDA-Public Use
  Company Number: PHHY2017FR199775

PATIENT
  Age: 49 Year
  Sex: Female

DRUGS (11)
  1. OXALIPLATIN. [Suspect]
     Active Substance: OXALIPLATIN
     Dosage: 150 MG, UNK (LAST ADMINISTRATION OF OXALIPLATINE (3RD CYCLE) BEFORE ONSET OF SAE)
     Route: 042
     Dates: start: 20160823
  2. 5-FLUOROURACIL [Suspect]
     Active Substance: FLUOROURACIL
     Indication: COLORECTAL CANCER METASTATIC
     Dosage: 4200 MG, UNK
     Route: 041
  3. 5-FLUOROURACIL [Suspect]
     Active Substance: FLUOROURACIL
     Dosage: 700 MG, UNK
     Route: 040
  4. AVASTIN [Suspect]
     Active Substance: BEVACIZUMAB
     Dosage: 340 MG, UNK (LAST ADMINISTRATION OF BEVACIZUMAB (2ND CYCLE) BEFORE ONSET OF SAE.)
     Route: 042
     Dates: start: 20160823
  5. OXALIPLATIN. [Suspect]
     Active Substance: OXALIPLATIN
     Indication: COLORECTAL CANCER METASTATIC
     Dosage: 150 MG, UNK
     Route: 042
  6. 5-FLUOROURACIL [Suspect]
     Active Substance: FLUOROURACIL
     Dosage: 4200 MG, UNK (LAST ADMINISTRATION OF 5-FU (3RD CYCLE) BEFORE ONSET OF SAE. )
     Route: 041
     Dates: start: 20160823
  7. AVASTIN [Suspect]
     Active Substance: BEVACIZUMAB
     Indication: COLORECTAL CANCER METASTATIC
     Dosage: 340 MG, UNK
     Route: 042
  8. IRINOTECAN [Suspect]
     Active Substance: IRINOTECAN
     Indication: COLORECTAL CANCER METASTATIC
     Dosage: 200 MG, UNK
     Route: 042
  9. IRINOTECAN [Suspect]
     Active Substance: IRINOTECAN
     Indication: OFF LABEL USE
     Dosage: 200 MG, UNK (LAST ADMINISTRATION OF IRINOTECAN (3RD CYCLE) BEFORE ONSET OF SAE))
     Route: 042
     Dates: start: 20160823
  10. 5-FLUOROURACIL [Suspect]
     Active Substance: FLUOROURACIL
     Dosage: 700 MG, UNK (ON 23/AUG/2016: LAST ADMINISTRATION OF 5-FU (3RD CYCLE) BEFORE ONSET OF SAE))
     Route: 040
     Dates: start: 20160823
  11. BETADINE [Concomitant]
     Active Substance: POVIDONE-IODINE
     Indication: PRODUCT USED FOR UNKNOWN INDICATION
     Route: 065

REACTIONS (4)
  - Enterocutaneous fistula [Recovered/Resolved]
  - Off label use [Unknown]
  - Intestinal obstruction [Recovered/Resolved]
  - Ascites [Recovered/Resolved]

NARRATIVE: CASE EVENT DATE: 20160830
